FAERS Safety Report 5914502-X (Version None)
Quarter: 2008Q4

REPORT INFORMATION
  Report Type: 
  Country: None (occurrence: None)
  Receive Date: 20081008
  Receipt Date: 20080924
  Transmission Date: 20090506
  Serious: Yes (Hospitalization)
  Sender: FDA-Public Use
  Company Number: A-CH2008-22085

PATIENT
  Age: 86 Year
  Sex: Female

DRUGS (9)
  1. TRACLEER [Suspect]
     Indication: SKIN ULCER
     Dosage: ORAL; 62.5 MG, BID, ORAL
     Route: 048
     Dates: end: 20080917
  2. TRACLEER [Suspect]
     Indication: SKIN ULCER
     Dosage: ORAL; 62.5 MG, BID, ORAL
     Route: 048
     Dates: start: 20080909
  3. PANTOPRAZOLE SODIUM [Concomitant]
  4. LANITOP (METILDIGOXIN) [Concomitant]
  5. LASIX [Concomitant]
  6. SPIRONO (SPIRONOLACTONE) [Concomitant]
  7. ESCITALOPRAM [Concomitant]
  8. LAEVOLAC (LACTULOSE) [Concomitant]
  9. MYCOSTATIN [Concomitant]

REACTIONS (4)
  - CONDITION AGGRAVATED [None]
  - GANGRENE [None]
  - INFLAMMATION OF WOUND [None]
  - NEUROLOGICAL SYMPTOM [None]
